FAERS Safety Report 22074697 (Version 1)
Quarter: 2023Q1

REPORT INFORMATION
  Report Type: Spontaneous
  Country: US (occurrence: None)
  Receive Date: 20230308
  Receipt Date: 20230308
  Transmission Date: 20230418
  Serious: Yes (unspecified)
  Sender: FDA-Public Use
  Company Number: None

PATIENT
  Age: 53 Year
  Sex: Female
  Weight: 132.75 kg

DRUGS (1)
  1. RYBELSUS [Suspect]
     Active Substance: SEMAGLUTIDE
     Indication: Type 2 diabetes mellitus
     Dosage: OTHER QUANTITY : 1 TABLET(S);?
     Route: 048
     Dates: start: 20230226, end: 20230228

REACTIONS (5)
  - Nausea [None]
  - Lethargy [None]
  - Impaired work ability [None]
  - Hypersensitivity [None]
  - Therapeutic product effect decreased [None]

NARRATIVE: CASE EVENT DATE: 20230301
